FAERS Safety Report 10989465 (Version 3)
Quarter: 2015Q3

REPORT INFORMATION
  Report Type: Spontaneous
  Country: US (occurrence: US)
  Receive Date: 20150406
  Receipt Date: 20150702
  Transmission Date: 20151125
  Serious: Yes (Other)
  Sender: FDA-Public Use
  Company Number: US-AMGEN-USASP2015031025

PATIENT
  Age: 65 Year
  Sex: Female
  Weight: 55.33 kg

DRUGS (14)
  1. AMBIEN [Concomitant]
     Active Substance: ZOLPIDEM TARTRATE
     Dosage: 5 MG, QD
     Route: 048
     Dates: start: 20110101
  2. CLARITIN [Concomitant]
     Active Substance: LORATADINE
     Dosage: 10 MG, AS NECESSARY
     Route: 048
     Dates: end: 20141205
  3. PROLIA [Suspect]
     Active Substance: DENOSUMAB
     Indication: OSTEOPOROSIS POSTMENOPAUSAL
     Dosage: 60 MG, Q6MO
     Route: 058
     Dates: start: 201403, end: 201403
  4. CALCIUM [Concomitant]
     Active Substance: CALCIUM
     Dosage: UNK
  5. REMICADE [Concomitant]
     Active Substance: INFLIXIMAB
     Dosage: 100 MG, Q8WK
     Route: 042
     Dates: start: 20140901
  6. MULTIVITAMIN                       /00097801/ [Concomitant]
     Active Substance: VITAMINS
     Dosage: 1 TABLET, QD
     Route: 048
  7. BONE UP [Concomitant]
     Dosage: UNK, TID
     Route: 048
     Dates: start: 20140905
  8. MAGNESIUM CITRATE. [Concomitant]
     Active Substance: MAGNESIUM CITRATE
     Dosage: 125 MG, TID
     Route: 048
     Dates: start: 20140905
  9. ENBREL [Suspect]
     Active Substance: ETANERCEPT
     Indication: RHEUMATOID ARTHRITIS
     Dosage: 50 MG/ML, QWK
     Route: 058
     Dates: start: 20120421, end: 201412
  10. VITAMIN D                          /00107901/ [Concomitant]
     Active Substance: ERGOCALCIFEROL
     Dosage: 3 DROPS (1000 IU), QD
     Route: 048
     Dates: start: 20140905
  11. VITAMIN D3 [Concomitant]
     Active Substance: CHOLECALCIFEROL
     Dosage: 2 DROPS, QD
     Dates: end: 20141205
  12. FISH OIL [Concomitant]
     Active Substance: FISH OIL
     Dosage: UNK, QD 1 TABLESPOON
     Dates: start: 20130104
  13. TRAMADOL HCL [Concomitant]
     Active Substance: TRAMADOL HYDROCHLORIDE
     Dosage: 50 MG, AS NECESSARY
     Route: 048
     Dates: start: 20120207
  14. METHOTREXATE [Concomitant]
     Active Substance: METHOTREXATE

REACTIONS (24)
  - Hypersensitivity [Unknown]
  - Vestibular neuronitis [Unknown]
  - Cognitive disorder [Unknown]
  - Osteonecrosis of jaw [Not Recovered/Not Resolved]
  - Depression [Unknown]
  - Ear pain [Unknown]
  - Anxiety [Unknown]
  - Nodule [Unknown]
  - Vertigo [Unknown]
  - Paraesthesia [Unknown]
  - Viral infection [Unknown]
  - Gingival ulceration [Recovered/Resolved]
  - Dry eye [Unknown]
  - Impaired healing [Not Recovered/Not Resolved]
  - Dysaesthesia [Unknown]
  - Sensory disturbance [Unknown]
  - Oropharyngeal pain [Unknown]
  - Nausea [Unknown]
  - Bone fragmentation [Recovered/Resolved]
  - Eye pruritus [Unknown]
  - Pain in jaw [Unknown]
  - Gingival ulceration [Unknown]
  - Hand deformity [Unknown]
  - Mood altered [Unknown]

NARRATIVE: CASE EVENT DATE: 201409
